FAERS Safety Report 14425622 (Version 3)
Quarter: 2018Q1

REPORT INFORMATION
  Report Type: Spontaneous
  Country: BR (occurrence: BR)
  Receive Date: 20180123
  Receipt Date: 20180205
  Transmission Date: 20180509
  Serious: Yes (Life-Threatening, Hospitalization, Other)
  Sender: FDA-Public Use
  Company Number: BR-ABBVIE-18P-020-2226201-00

PATIENT
  Age: 8 Year
  Sex: Male

DRUGS (1)
  1. DEPAKOTE [Suspect]
     Active Substance: DIVALPROEX SODIUM
     Indication: SEIZURE
     Route: 065

REACTIONS (17)
  - Muscle rigidity [Unknown]
  - Food refusal [Unknown]
  - Somnolence [Unknown]
  - Pneumonia [Unknown]
  - Drooling [Unknown]
  - Sleep disorder [Unknown]
  - Balance disorder [Unknown]
  - Seizure [Recovered/Resolved]
  - Petit mal epilepsy [Unknown]
  - Eye movement disorder [Unknown]
  - Vomiting [Unknown]
  - Muscle spasms [Unknown]
  - Aspiration [Unknown]
  - Drug administered to patient of inappropriate age [Unknown]
  - Product quality issue [Unknown]
  - Skin discolouration [Unknown]
  - Unresponsive to stimuli [Unknown]
